FAERS Safety Report 16692268 (Version 9)
Quarter: 2020Q1

REPORT INFORMATION
  Report Type: Report from Study
  Country: None (occurrence: TR)
  Receive Date: 20190812
  Receipt Date: 20200217
  Transmission Date: 20200409
  Serious: Yes (Other)
  Sender: FDA-Public Use
  Company Number: TR-ABBVIE-19K-161-2880323-00

PATIENT
  Age: 67 Year
  Sex: Female
  Weight: 90 kg

DRUGS (11)
  1. DUODOPA [Suspect]
     Active Substance: CARBIDOPA\LEVODOPA
     Dosage: MORNING DOSE (ML): 0.00 CONTINUOUS DOSE (ML): 6.00 EXTRA DOSE?(ML): 2.00
     Route: 050
     Dates: start: 20191018, end: 20191111
  2. DILATREND [Concomitant]
     Active Substance: CARVEDILOL
     Indication: HYPERTENSION
     Route: 048
     Dates: start: 2015
  3. FOLBIOL [Concomitant]
     Active Substance: FOLIC ACID
     Indication: VITAMIN SUPPLEMENTATION
     Route: 048
     Dates: start: 20180524
  4. DUODOPA [Suspect]
     Active Substance: CARBIDOPA\LEVODOPA
     Dosage: MORNING DOSE (ML): 0.00 CONTINUOUS DOSE (ML): 6.00 EXTRA DOSE (ML): 2.00
     Route: 050
     Dates: start: 20190811, end: 20190819
  5. BEMIKS C [Concomitant]
     Indication: VITAMIN SUPPLEMENTATION
     Route: 048
     Dates: start: 2017
  6. DUODOPA [Suspect]
     Active Substance: CARBIDOPA\LEVODOPA
     Indication: PARKINSON^S DISEASE
     Dosage: MORNING DOSE (ML): 0.00 CONTINUOUS DOSE (ML): 6.00 EXTRA DOSE (ML): 2.00
     Route: 050
     Dates: start: 20140828, end: 20190807
  7. DUODOPA [Suspect]
     Active Substance: CARBIDOPA\LEVODOPA
     Dosage: MORNING DOSE (ML): 0.00 CONTINUOUS DOSE (ML): 6.00 EXTRA DOSE?(ML): 2.00
     Route: 050
     Dates: start: 20200128
  8. PK MERZ [Concomitant]
     Active Substance: AMANTADINE SULFATE
     Indication: PARKINSON^S DISEASE
     Dosage: 3X2
     Route: 048
     Dates: start: 2013
  9. NOVOMIX [Concomitant]
     Active Substance: INSULIN ASPART
     Indication: DIABETES MELLITUS
     Dosage: MORNING DOSE: 28 IU, EVENING DOSE: 20 IU
     Route: 058
     Dates: start: 20140828
  10. MADOPAR HBS [Concomitant]
     Active Substance: BENSERAZIDE HYDROCHLORIDE\LEVODOPA
     Indication: PARKINSON^S DISEASE
     Dosage: 1X3
     Route: 048
     Dates: end: 2013
  11. ECOPIRIN [Concomitant]
     Active Substance: ASPIRIN
     Indication: ANTICOAGULANT THERAPY
     Route: 048
     Dates: start: 2015

REACTIONS (8)
  - Application site wound [Recovered/Resolved]
  - Stoma site discharge [Recovered/Resolved]
  - Stoma site infection [Recovered/Resolved]
  - Weight decreased [Recovered/Resolved]
  - Stoma site pain [Recovered/Resolved]
  - Duodenal perforation [Recovered/Resolved]
  - Procedural complication [Recovered/Resolved]
  - Duodenal ulcer [Recovered/Resolved]

NARRATIVE: CASE EVENT DATE: 20190807
